FAERS Safety Report 24383474 (Version 2)
Quarter: 2024Q4

REPORT INFORMATION
  Report Type: Spontaneous
  Country: NL (occurrence: NL)
  Receive Date: 20241001
  Receipt Date: 20241029
  Transmission Date: 20250115
  Serious: Yes (Other)
  Sender: BRISTOL-MYERS SQUIBB COMPANY
  Company Number: NL-BRISTOL-MYERS SQUIBB COMPANY-2024-151597

PATIENT
  Age: 4 Decade
  Sex: Male

DRUGS (3)
  1. BELATACEPT [Suspect]
     Active Substance: BELATACEPT
     Indication: Renal transplant
  2. MYCOPHENOLATE MOFETIL [Suspect]
     Active Substance: MYCOPHENOLATE MOFETIL
     Indication: Product used for unknown indication
     Dosage: 2 X 360 MG
  3. PREDNISONE ACETATE [Suspect]
     Active Substance: PREDNISONE ACETATE
     Indication: Product used for unknown indication

REACTIONS (1)
  - Pneumocystis jirovecii pneumonia [Recovering/Resolving]
